FAERS Safety Report 24896003 (Version 2)
Quarter: 2025Q1

REPORT INFORMATION
  Report Type: Spontaneous
  Country: ES (occurrence: ES)
  Receive Date: 20250128
  Receipt Date: 20250203
  Transmission Date: 20250409
  Serious: Yes (Hospitalization, Other)
  Sender: PFIZER
  Company Number: ES-SUN PHARMACEUTICAL INDUSTRIES LTD-2025R1-490419

PATIENT
  Age: 70 Year
  Sex: Male

DRUGS (2)
  1. SUNITINIB MALATE [Suspect]
     Active Substance: SUNITINIB MALATE
     Indication: Renal cell carcinoma stage IV
     Route: 048
  2. SUNITINIB MALATE [Suspect]
     Active Substance: SUNITINIB MALATE
     Route: 048

REACTIONS (7)
  - Toxic skin eruption [Recovered/Resolved]
  - Superinfection [Recovered/Resolved]
  - Anaemia [Recovered/Resolved]
  - Constipation [Recovered/Resolved]
  - Stomatitis [Recovered/Resolved]
  - Oedema genital [Recovered/Resolved]
  - Palmar-plantar erythrodysaesthesia syndrome [Recovered/Resolved]
